FAERS Safety Report 6083311-6 (Version None)
Quarter: 2009Q1

REPORT INFORMATION
  Report Type: 
  Country: None (occurrence: None)
  Receive Date: 20090219
  Receipt Date: 20090209
  Transmission Date: 20090719
  Serious: Yes (Other)
  Sender: FDA-Public Use
  Company Number: US-AMGEN-QUU333047

PATIENT
  Sex: Female

DRUGS (1)
  1. ENBREL [Suspect]
     Indication: RHEUMATOID ARTHRITIS
     Route: 058
     Dates: start: 20000201

REACTIONS (5)
  - BACTERIAL INFECTION [None]
  - ORAL CANDIDIASIS [None]
  - SJOGREN'S SYNDROME [None]
  - STOMATITIS [None]
  - TOOTH INFECTION [None]
